FAERS Safety Report 26102638 (Version 1)
Quarter: 2025Q4

REPORT INFORMATION
  Report Type: Spontaneous
  Country: CN (occurrence: CN)
  Receive Date: 20251128
  Receipt Date: 20251128
  Transmission Date: 20260118
  Serious: Yes (Other)
  Sender: PFIZER
  Company Number: CN-PFIZER INC-202500230441

PATIENT
  Age: 70 Year
  Sex: Female

DRUGS (2)
  1. LORBRENA [Suspect]
     Active Substance: LORLATINIB
     Dosage: 1X/DAY
     Dates: start: 202502
  2. LORBRENA [Suspect]
     Active Substance: LORLATINIB
     Dosage: 2X/DAY
     Dates: start: 202510

REACTIONS (4)
  - Cerebellar atrophy [Unknown]
  - Memory impairment [Unknown]
  - Extra dose administered [Unknown]
  - Intentional dose omission [Unknown]

NARRATIVE: CASE EVENT DATE: 20250925
